FAERS Safety Report 7721685-8 (Version None)
Quarter: 2011Q3

REPORT INFORMATION
  Report Type: 
  Country: None (occurrence: None)
  Receive Date: 20110831
  Receipt Date: 20110827
  Transmission Date: 20111222
  Serious: Yes (Other)
  Sender: FDA-Public Use
  Company Number: CO-GLAXOSMITHKLINE-A0942879A

PATIENT
  Age: 76 Year
  Sex: Female

DRUGS (3)
  1. THYROXIN [Concomitant]
  2. ALISKIREN [Concomitant]
  3. WELLBUTRIN [Suspect]
     Indication: MAJOR DEPRESSION
     Dosage: 300MGD PER DAY
     Route: 048
     Dates: start: 20110601

REACTIONS (5)
  - JUDGEMENT IMPAIRED [None]
  - ABNORMAL BEHAVIOUR [None]
  - HALLUCINATION [None]
  - DELUSION [None]
  - DEREALISATION [None]
